FAERS Safety Report 9262346 (Version 1)
Quarter: 2013Q2

REPORT INFORMATION
  Report Type: Spontaneous
  Country: JP (occurrence: JP)
  Receive Date: 20130430
  Receipt Date: 20130430
  Transmission Date: 20140414
  Serious: Yes (Hospitalization)
  Sender: FDA-Public Use
  Company Number: PHHY2013JP037191

PATIENT
  Age: 83 Year
  Sex: Male

DRUGS (5)
  1. RIVASTIGMIN [Suspect]
     Indication: DEMENTIA ALZHEIMER^S TYPE
     Dosage: 4.5 MG, QD
     Route: 062
  2. RIVASTIGMIN [Suspect]
     Dosage: 9 MG, QD
     Route: 062
  3. RIVASTIGMIN [Suspect]
     Dosage: 13.5 MG, QD
     Route: 062
  4. RIVASTIGMIN [Suspect]
     Dosage: 18 MG, QD
     Route: 062
     Dates: end: 20130310
  5. RIVASTIGMIN [Suspect]
     Dosage: 4.5 MG, QD
     Route: 062
     Dates: start: 20130408

REACTIONS (1)
  - Cerebral infarction [Recovered/Resolved]
